FAERS Safety Report 6923827-0 (Version None)
Quarter: 2010Q3

REPORT INFORMATION
  Report Type: 
  Country: None (occurrence: None)
  Receive Date: 20100813
  Receipt Date: 20090805
  Transmission Date: 20110219
  Serious: No
  Sender: FDA-Public Use
  Company Number: US-BRISTOL-MYERS SQUIBB COMPANY-14730303

PATIENT
  Age: 48 Year
  Sex: Male

DRUGS (4)
  1. REYATAZ [Suspect]
     Dates: start: 20040201
  2. NORVIR [Suspect]
     Dates: start: 20040201
  3. VIRAMUNE [Suspect]
  4. ISENTRESS [Suspect]

REACTIONS (1)
  - NEPHROLITHIASIS [None]
